FAERS Safety Report 13569162 (Version 9)
Quarter: 2018Q1

REPORT INFORMATION
  Report Type: Spontaneous
  Country: US (occurrence: US)
  Receive Date: 20170522
  Receipt Date: 20180213
  Transmission Date: 20180508
  Serious: No
  Sender: FDA-Public Use
  Company Number: US-INCYTE CORPORATION-2017IN003810

PATIENT

DRUGS (4)
  1. MULTIVITAMIN                       /07504101/ [Concomitant]
     Active Substance: VITAMINS
     Indication: PRODUCT USED FOR UNKNOWN INDICATION
  2. ASPIRIN                            /00002701/ [Concomitant]
     Active Substance: ASPIRIN
     Indication: PRODUCT USED FOR UNKNOWN INDICATION
     Dosage: UNK
  3. JAKAFI [Suspect]
     Active Substance: RUXOLITINIB
     Indication: POLYCYTHAEMIA VERA
     Dosage: 10 MG, BID
     Route: 048
     Dates: start: 20170222
  4. JAKAFI [Suspect]
     Active Substance: RUXOLITINIB
     Dosage: 10 MG, BID
     Route: 048

REACTIONS (7)
  - Weight increased [Unknown]
  - Headache [Unknown]
  - Dizziness postural [Unknown]
  - Amnesia [Unknown]
  - Drug dose omission [Unknown]
  - Hypotension [Unknown]
  - Treatment noncompliance [Not Recovered/Not Resolved]

NARRATIVE: CASE EVENT DATE: 20170222
